FAERS Safety Report 11156876 (Version 1)
Quarter: 2015Q2

REPORT INFORMATION
  Report Type: Spontaneous
  Country: PL (occurrence: PL)
  Receive Date: 20150602
  Receipt Date: 20150602
  Transmission Date: 20150821
  Serious: Yes (Other)
  Sender: FDA-Public Use
  Company Number: PL-TEVA-566723ISR

PATIENT
  Age: 63 Year
  Sex: Female
  Weight: 67 kg

DRUGS (2)
  1. CISPLATYNA [Suspect]
     Active Substance: CISPLATIN
     Indication: LUNG NEOPLASM MALIGNANT
     Dosage: 52 MILLIGRAM DAILY;
     Route: 042
     Dates: start: 20140415
  2. ETOPOZYD [Suspect]
     Active Substance: ETOPOSIDE
     Route: 042
     Dates: start: 20140415

REACTIONS (1)
  - Dermatitis [Recovering/Resolving]

NARRATIVE: CASE EVENT DATE: 20140513
